FAERS Safety Report 7630791-8 (Version None)
Quarter: 2011Q3

REPORT INFORMATION
  Report Type: 
  Country: None (occurrence: None)
  Receive Date: 20110722
  Receipt Date: 20110712
  Transmission Date: 20111222
  Serious: Yes (Hospitalization)
  Sender: FDA-Public Use
  Company Number: US-AMGEN-USASP2011035289

PATIENT
  Age: 70 Year
  Sex: Female

DRUGS (1)
  1. ENBREL [Suspect]
     Indication: RHEUMATOID ARTHRITIS
     Dosage: 50 MG, QWK
     Dates: start: 20061201

REACTIONS (9)
  - JOINT SWELLING [None]
  - RASH MACULAR [None]
  - COUGH [None]
  - BONE DEFORMITY [None]
  - PNEUMONIA [None]
  - BACK PAIN [None]
  - VOMITING [None]
  - FATIGUE [None]
  - ARTHRALGIA [None]
